FAERS Safety Report 16774812 (Version 1)
Quarter: 2019Q3

REPORT INFORMATION
  Report Type: Spontaneous
  Country: GB (occurrence: GB)
  Receive Date: 20190905
  Receipt Date: 20190905
  Transmission Date: 20191005
  Serious: Yes (Hospitalization)
  Sender: FDA-Public Use
  Company Number: GB-PFIZER INC-2019379706

PATIENT
  Age: 59 Year
  Sex: Female

DRUGS (8)
  1. BISOPROLOL [Concomitant]
     Active Substance: BISOPROLOL
     Dosage: 2.5 MG, 1X/DAY (IN THE MORNING)
  2. BUMETANIDE. [Concomitant]
     Active Substance: BUMETANIDE
     Dosage: 6 MG, 1X/DAY  (MORNING AND LUNCHTIME)
  3. RAMIPRIL. [Concomitant]
     Active Substance: RAMIPRIL
     Indication: HYPERTENSION
     Dosage: 2.5 MG, 1X/DAY AT NIGHT
  4. AMIODARONE HCL [Suspect]
     Active Substance: AMIODARONE HYDROCHLORIDE
     Dosage: 200 MG, 1X/DAY  (IN THE MORNING)
     Route: 065
  5. ACETYLSALICYLIC ACID [Concomitant]
     Active Substance: ASPIRIN
     Dosage: 75 MG, 1X/DAY(TO BE DISPERSED IN WATER)
  6. WARFARIN [Concomitant]
     Active Substance: WARFARIN
     Dosage: 15 MG, WEEKLY (2MG DAILY, 3MG ON SUNDAYS)
  7. LEVOTHYROXINE. [Concomitant]
     Active Substance: LEVOTHYROXINE
     Dosage: 20 UG, 1X/DAY
  8. RANITIDINE. [Concomitant]
     Active Substance: RANITIDINE
     Dosage: 300 MG, 1X/DAY

REACTIONS (3)
  - Skin weeping [Unknown]
  - Dyspnoea [Unknown]
  - Alveolitis [Unknown]
